FAERS Safety Report 18472630 (Version 2)
Quarter: 2020Q4

REPORT INFORMATION
  Report Type: Report from Study
  Country: None (occurrence: US)
  Receive Date: 20201106
  Receipt Date: 20201119
  Transmission Date: 20210114
  Serious: No
  Sender: FDA-Public Use
  Company Number: US-INSMED, INC.-US-INS-20-01725

PATIENT
  Age: 64 Year
  Sex: Female

DRUGS (4)
  1. ARIKAYCE [Suspect]
     Active Substance: AMIKACIN
     Indication: MYCOBACTERIUM ABSCESSUS INFECTION
     Route: 055
     Dates: start: 20201019
  2. ARIKAYCE [Suspect]
     Active Substance: AMIKACIN
     Indication: MYCOBACTERIUM AVIUM COMPLEX INFECTION
     Route: 055
     Dates: start: 20200911, end: 2020
  3. AMINOPHYLLINE. [Concomitant]
     Active Substance: AMINOPHYLLINE
     Indication: LUNG DISORDER
     Route: 042
  4. AZITHROMYCIN ANHYDROUS. [Concomitant]
     Active Substance: AZITHROMYCIN ANHYDROUS
     Indication: LUNG DISORDER

REACTIONS (10)
  - Throat irritation [Not Recovered/Not Resolved]
  - Aphonia [Not Recovered/Not Resolved]
  - Cough [Recovering/Resolving]
  - Chest pain [Not Recovered/Not Resolved]
  - Therapy interrupted [Unknown]
  - Chest discomfort [Recovering/Resolving]
  - Asthma [Not Recovered/Not Resolved]
  - Off label use [Unknown]
  - Dysphonia [Not Recovered/Not Resolved]
  - Wheezing [Recovering/Resolving]

NARRATIVE: CASE EVENT DATE: 202009
